FAERS Safety Report 11802220 (Version 1)
Quarter: 2015Q4

REPORT INFORMATION
  Report Type: Spontaneous
  Country: US (occurrence: None)
  Receive Date: 20151203
  Receipt Date: 20151203
  Transmission Date: 20160305
  Serious: Yes (Life-Threatening, Other)
  Sender: FDA-Public Use
  Company Number: None

PATIENT
  Age: 40 Year
  Sex: Female
  Weight: 95.8 kg

DRUGS (12)
  1. PLAQUENIL (HYDROXYCHLOROQUINE) [Concomitant]
  2. AMLODIPINE [Concomitant]
     Active Substance: AMLODIPINE BESYLATE
  3. OMEPRAZOLE. [Concomitant]
     Active Substance: OMEPRAZOLE
  4. AMITRIPTYLINE [Concomitant]
     Active Substance: AMITRIPTYLINE
  5. ARIXTRA (FONDAPARINUX) [Concomitant]
  6. HYCOSAMINE [Concomitant]
  7. PREDNISONE. [Concomitant]
     Active Substance: PREDNISONE
  8. COUMADIN [Concomitant]
     Active Substance: WARFARIN SODIUM
  9. LISINOPRIL. [Concomitant]
     Active Substance: LISINOPRIL
  10. APIXABAN [Suspect]
     Active Substance: APIXABAN
     Indication: THROMBOSIS PROPHYLAXIS
     Route: 048
     Dates: start: 20150615
  11. IBUPROFEN. [Concomitant]
     Active Substance: IBUPROFEN
  12. ZOLOFT [Concomitant]
     Active Substance: SERTRALINE HYDROCHLORIDE

REACTIONS (5)
  - Cerebral infarction [None]
  - Cerebrovascular accident [None]
  - Headache [None]
  - Dizziness [None]
  - Hypertension [None]

NARRATIVE: CASE EVENT DATE: 20151118
